FAERS Safety Report 5736684-5 (Version None)
Quarter: 2008Q2

REPORT INFORMATION
  Report Type: 
  Country: None (occurrence: None)
  Receive Date: 20080513
  Receipt Date: 20080410
  Transmission Date: 20081010
  Serious: Yes (Other)
  Sender: FDA-Public Use
  Company Number: US-PFIZER INC-2008021525

PATIENT
  Sex: Female

DRUGS (1)
  1. CHANTIX [Suspect]

REACTIONS (7)
  - ANXIETY [None]
  - ARTHRALGIA [None]
  - MAJOR DEPRESSION [None]
  - MYALGIA [None]
  - PSYCHOTIC DISORDER [None]
  - SUICIDAL IDEATION [None]
  - UNEVALUABLE EVENT [None]
